FAERS Safety Report 4713101-5 (Version None)
Quarter: 2005Q3

REPORT INFORMATION
  Report Type: 
  Country: None (occurrence: None)
  Receive Date: 20050712
  Receipt Date: 20050712
  Transmission Date: 20060218
  Serious: Yes (Hospitalization)
  Sender: FDA-Public Use
  Company Number: None

PATIENT
  Age: 52 Year
  Sex: Male
  Weight: 118.4 kg

DRUGS (11)
  1. MINOXIDIL [Suspect]
     Indication: HYPERTENSION
     Dosage: 20 MG, 10 MG BID ORAL
     Route: 048
     Dates: end: 20050219
  2. ASPIRIN [Concomitant]
  3. CLONIDINE [Concomitant]
  4. ALBUTEROL SULFATE AND IPRATROPIUM BROMIDE [Concomitant]
  5. DOCUSATE NA [Concomitant]
  6. MAGNESIUM OXIDE [Concomitant]
  7. CALCIUM CARBONATE [Concomitant]
  8. NEPHRO-VITE [Concomitant]
  9. ADALAT CC [Concomitant]
  10. TERAZOSIN HCL [Concomitant]
  11. CALCIUM ACETATE [Concomitant]

REACTIONS (1)
  - PERICARDIAL EFFUSION [None]
